FAERS Safety Report 8489733-8 (Version None)
Quarter: 2012Q3

REPORT INFORMATION
  Report Type: 
  Country: None (occurrence: None)
  Receive Date: 20120705
  Receipt Date: 20120629
  Transmission Date: 20120928
  Serious: Yes (Other)
  Sender: FDA-Public Use
  Company Number: JP-GLAXOSMITHKLINE-B0811360A

PATIENT
  Sex: Male

DRUGS (6)
  1. DUTASTERIDE [Suspect]
     Dosage: .5MG PER DAY
     Route: 048
     Dates: start: 20120612
  2. ARYTHMET [Concomitant]
     Dosage: 100MG PER DAY
     Route: 048
  3. DUTASTERIDE [Suspect]
     Indication: PRODUCT USED FOR UNKNOWN INDICATION
     Dosage: .5MG PER DAY
     Route: 048
     Dates: start: 20111025, end: 20120610
  4. LOSARTAN POTASSIUM [Concomitant]
     Dosage: 25MG PER DAY
     Route: 048
  5. DILTIAZEM HCL [Concomitant]
     Dosage: 100MG PER DAY
     Route: 048
  6. URIEF [Concomitant]
     Dosage: 8MG PER DAY
     Route: 048
     Dates: start: 20111025, end: 20120610

REACTIONS (2)
  - GASTROINTESTINAL HAEMORRHAGE [None]
  - HAEMATOCHEZIA [None]
